FAERS Safety Report 5760751-3 (Version None)
Quarter: 2008Q2

REPORT INFORMATION
  Report Type: 
  Country: None (occurrence: None)
  Receive Date: 20080606
  Receipt Date: 20080426
  Transmission Date: 20081010
  Serious: Yes (Other)
  Sender: FDA-Public Use
  Company Number: JP-BAYER-200818629GPV

PATIENT
  Age: 56 Year
  Sex: Male

DRUGS (3)
  1. FLUDARABINE PHOSPHATE [Suspect]
     Indication: BONE MARROW CONDITIONING REGIMEN
     Dosage: AS USED: 30  MG/M2
  2. BUSULFAN [Suspect]
     Indication: BONE MARROW CONDITIONING REGIMEN
     Dosage: AS USED: 4 MG/KG
  3. PREDNISOLONE [Concomitant]
     Indication: CHRONIC GRAFT VERSUS HOST DISEASE

REACTIONS (1)
  - CYTOMEGALOVIRUS COLITIS [None]
